FAERS Safety Report 6999787-3 (Version None)
Quarter: 2010Q3

REPORT INFORMATION
  Report Type: 
  Country: None (occurrence: None)
  Receive Date: 20100920
  Receipt Date: 20100909
  Transmission Date: 20110219
  Serious: Yes (Hospitalization, Other)
  Sender: FDA-Public Use
  Company Number: PHHY2010DE60855

PATIENT
  Sex: Male

DRUGS (1)
  1. ZOMETA [Suspect]
     Indication: METASTASES TO BONE
     Dosage: ONCE MONTHLY
     Route: 042
     Dates: start: 20020101, end: 20090101

REACTIONS (6)
  - GASTROINTESTINAL TUBE INSERTION [None]
  - IMPAIRED HEALING [None]
  - OSTEONECROSIS OF JAW [None]
  - SURGERY [None]
  - TOOTH EXTRACTION [None]
  - WOUND TREATMENT [None]
